FAERS Safety Report 4340148-3 (Version None)
Quarter: 2004Q2

REPORT INFORMATION
  Report Type: 
  Country: None (occurrence: None)
  Receive Date: 20040416
  Receipt Date: 20040416
  Transmission Date: 20050107
  Serious: Yes (Other)
  Sender: FDA-Public Use
  Company Number: None

PATIENT
  Age: 46 Year
  Sex: Female

DRUGS (4)
  1. VANCOMYCIN [Suspect]
     Indication: ABSCESS
     Dosage: 1 G IV Q 12 H
     Route: 042
     Dates: start: 20031227, end: 20040112
  2. DARVOCET-N 100 [Concomitant]
  3. HUMULIN R [Concomitant]
  4. HUMULIN N [Concomitant]

REACTIONS (1)
  - RASH PRURITIC [None]
